FAERS Safety Report 9989735 (Version 1)
Quarter: 2014Q1

REPORT INFORMATION
  Report Type: Report from Study
  Country: US (occurrence: US)
  Receive Date: 20140310
  Receipt Date: 20140310
  Transmission Date: 20141002
  Serious: No
  Sender: FDA-Public Use
  Company Number: US-ABBVIE-13P-163-1130861-00

PATIENT
  Sex: Female

DRUGS (9)
  1. HUMIRA [Suspect]
     Indication: RHEUMATOID ARTHRITIS
     Dates: start: 20130522
  2. HYDROXYCHLOR [Concomitant]
     Indication: RHEUMATOID ARTHRITIS
  3. HCTZ [Concomitant]
     Indication: BLOOD PRESSURE MANAGEMENT
  4. TOPAMAX [Concomitant]
     Indication: MIGRAINE
  5. TOPAMAX [Concomitant]
     Indication: INSOMNIA
  6. ALPRAZOLAM [Concomitant]
     Indication: NERVOUSNESS
     Dosage: 0.5 MG 1/2 TABLET IN MORNING AND 1 TABLET AT BEDTIME
  7. FOLIC ACID [Concomitant]
     Indication: VITAMIN SUPPLEMENTATION
  8. KLOR-CON [Concomitant]
     Indication: MINERAL SUPPLEMENTATION
  9. PRISTIQ [Concomitant]
     Indication: DEPRESSION

REACTIONS (2)
  - Musculoskeletal discomfort [Not Recovered/Not Resolved]
  - Arthralgia [Not Recovered/Not Resolved]
